FAERS Safety Report 4709409-X (Version None)
Quarter: 2005Q3

REPORT INFORMATION
  Report Type: 
  Country: None (occurrence: None)
  Receive Date: 20050708
  Receipt Date: 20050629
  Transmission Date: 20060218
  Serious: Yes (Other)
  Sender: FDA-Public Use
  Company Number: PHNU2005DE02415

PATIENT
  Sex: Female

DRUGS (1)
  1. COMBIPATCH [Suspect]

REACTIONS (1)
  - MALIGNANT MELANOMA [None]
